FAERS Safety Report 7483748-4 (Version None)
Quarter: 2011Q2

REPORT INFORMATION
  Report Type: 
  Country: None (occurrence: None)
  Receive Date: 20110517
  Receipt Date: 20110503
  Transmission Date: 20111010
  Serious: Yes (Hospitalization, Other)
  Sender: FDA-Public Use
  Company Number: US-ELI_LILLY_AND_COMPANY-US201007004450

PATIENT
  Sex: Female

DRUGS (2)
  1. FORTEO [Suspect]
     Dosage: 20 UG, QD
     Dates: start: 20100801
  2. FORTEO [Suspect]
     Indication: OSTEOPOROSIS
     Dosage: 20 UG, QD
     Route: 065
     Dates: end: 20100601

REACTIONS (5)
  - FALL [None]
  - CORONARY ARTERY BYPASS [None]
  - FEMUR FRACTURE [None]
  - CARDIAC PROCEDURE COMPLICATION [None]
  - MYOCARDIAL INFARCTION [None]
